FAERS Safety Report 8416909 (Version 2)
Quarter: 2012Q4

REPORT INFORMATION
  Report Type: 
  Country: US (occurrence: US)
  Receive Date: 20120220
  Receipt Date: 20121010
  Transmission Date: 20130627
  Serious: Yes (Other)
  Sender: FDA-Public Use
  Company Number: US-ELI_LILLY_AND_COMPANY-US201202002701

PATIENT
  Age: 57 Year
  Sex: Male

DRUGS (8)
  1. CYMBALTA [Suspect]
     Indication: DEPRESSION
     Dosage: 60 mg, qd
     Dates: start: 2006, end: 20111203
  2. CYMBALTA [Suspect]
     Dosage: 60 mg, qd
     Dates: start: 201202, end: 201204
  3. CYMBALTA [Suspect]
     Dosage: 50 mg, qd
     Dates: start: 201204, end: 201206
  4. CYMBALTA [Suspect]
     Dosage: 40 mg, qd
     Dates: start: 201206, end: 201208
  5. CYMBALTA [Suspect]
     Dosage: 30 mg, UNK
     Dates: start: 201208, end: 201209
  6. CYMBALTA [Suspect]
     Dosage: 60 mg, UNK
     Dates: start: 201209
  7. L-DOPA [Concomitant]
     Indication: NOREPINEPHRINE DECREASED
     Dosage: UNK
  8. PREVACID [Concomitant]

REACTIONS (12)
  - Retinal tear [Recovered/Resolved]
  - Hypertension [Not Recovered/Not Resolved]
  - Drug dependence [Unknown]
  - Decreased activity [Unknown]
  - Aphagia [Unknown]
  - Emotional disorder [Unknown]
  - Norepinephrine decreased [Unknown]
  - Intentional drug misuse [Unknown]
  - Insomnia [Unknown]
  - Drug withdrawal syndrome [Unknown]
  - Weight increased [Recovering/Resolving]
  - Paraesthesia [Recovering/Resolving]
